FAERS Safety Report 8504078-5 (Version None)
Quarter: 2012Q3

REPORT INFORMATION
  Report Type: 
  Country: None (occurrence: None)
  Receive Date: 20120711
  Receipt Date: 20120702
  Transmission Date: 20120928
  Serious: Yes (Other)
  Sender: FDA-Public Use
  Company Number: JP-VERTEX PHARMACEUTICALS INC.-AE-2012-010028

PATIENT
  Age: 71 Year
  Sex: Female

DRUGS (10)
  1. LASIX [Concomitant]
     Indication: ADVERSE EVENT
     Route: 048
     Dates: start: 20120502
  2. CONIEL [Concomitant]
     Route: 048
  3. TELAVIC (TELAPREVIR) [Suspect]
     Indication: HEPATITIS C
     Route: 048
     Dates: start: 20120221, end: 20120328
  4. PEG-INTRON [Concomitant]
     Route: 058
     Dates: start: 20120426
  5. REBETOL [Concomitant]
     Route: 048
     Dates: start: 20120426
  6. PEG-INTRON [Concomitant]
     Indication: HEPATITIS C
     Route: 058
     Dates: start: 20120221
  7. TELAVIC (TELAPREVIR) [Suspect]
     Route: 048
     Dates: start: 20120426, end: 20120516
  8. REBETOL [Concomitant]
     Indication: HEPATITIS C
     Route: 048
     Dates: start: 20120221
  9. ADALAT [Concomitant]
     Route: 048
     Dates: start: 20120419
  10. CANDESARTAN CILEXETIL [Concomitant]
     Route: 048
     Dates: start: 20120510

REACTIONS (2)
  - CARDIAC FAILURE [None]
  - OEDEMA PERIPHERAL [None]
